FAERS Safety Report 9329501 (Version 3)
Quarter: 2013Q3

REPORT INFORMATION
  Report Type: Spontaneous
  Country: US (occurrence: US)
  Receive Date: 20130604
  Receipt Date: 20130918
  Transmission Date: 20140515
  Serious: Yes (Death, Hospitalization, Other)
  Sender: FDA-Public Use
  Company Number: US-PFIZER INC-2013166163

PATIENT
  Age: 74 Year
  Sex: Male

DRUGS (1)
  1. REVATIO [Suspect]
     Indication: PULMONARY ARTERIAL HYPERTENSION
     Dosage: 20MG - 4 TABS 3X/DAY
     Dates: start: 20130409

REACTIONS (4)
  - Cardiac failure [Fatal]
  - Renal failure [Fatal]
  - Graft infection [Unknown]
  - Off label use [Unknown]
